FAERS Safety Report 5524408-6 (Version None)
Quarter: 2007Q4

REPORT INFORMATION
  Report Type: 
  Country: None (occurrence: None)
  Receive Date: 20071121
  Receipt Date: 20071112
  Transmission Date: 20080405
  Serious: Yes (Other)
  Sender: FDA-Public Use
  Company Number: MX-PFIZER INC-2007097008

PATIENT
  Sex: Female
  Weight: 56 kg

DRUGS (2)
  1. CHAMPIX [Suspect]
     Indication: ILL-DEFINED DISORDER
     Route: 048
  2. VENLAFAXINE HCL [Concomitant]
     Dosage: DAILY DOSE:75MG
     Route: 048

REACTIONS (7)
  - ANXIETY [None]
  - CRYING [None]
  - DEPRESSED MOOD [None]
  - INSOMNIA [None]
  - IRRITABILITY [None]
  - MORBID THOUGHTS [None]
  - PARAESTHESIA [None]
